FAERS Safety Report 18208704 (Version 1)
Quarter: 2020Q3

REPORT INFORMATION
  Report Type: Spontaneous
  Country: US (occurrence: US)
  Receive Date: 20200828
  Receipt Date: 20200828
  Transmission Date: 20201103
  Serious: Yes (Hospitalization, Other)
  Sender: FDA-Public Use
  Company Number: US-PURDUE-USA-2020-0163533

PATIENT
  Sex: Male

DRUGS (2)
  1. OXYCODONE HYDROCHLORIDE (SIMILAR TO NDA 22?272) [Suspect]
     Active Substance: OXYCODONE HYDROCHLORIDE
     Indication: BACK PAIN
     Dosage: UNK
     Route: 048
     Dates: start: 2010
  2. OXYCODONE HCL TABLETS (RHODES 91?490) [Suspect]
     Active Substance: OXYCODONE HYDROCHLORIDE
     Indication: BACK PAIN
     Dosage: UNK
     Route: 048

REACTIONS (17)
  - Sleep apnoea syndrome [Unknown]
  - Depression [Unknown]
  - Mood swings [Unknown]
  - Hot flush [Unknown]
  - Nephrolithiasis [Unknown]
  - Drug withdrawal syndrome [Unknown]
  - Spinal operation [Unknown]
  - Injury [Unknown]
  - Unevaluable event [Unknown]
  - Decreased immune responsiveness [Unknown]
  - Insomnia [Unknown]
  - Adverse drug reaction [Unknown]
  - Pain threshold decreased [Unknown]
  - Constipation [Unknown]
  - Drug dependence [Unknown]
  - Pain [Unknown]
  - Hyperhidrosis [Unknown]

NARRATIVE: CASE EVENT DATE: 2010
